FAERS Safety Report 6271325-2 (Version None)
Quarter: 2009Q3

REPORT INFORMATION
  Report Type: 
  Country: None (occurrence: None)
  Receive Date: 20090717
  Receipt Date: 20090714
  Transmission Date: 20100115
  Serious: Yes (Hospitalization)
  Sender: FDA-Public Use
  Company Number: US-KINGPHARMUSA00001-K200900829

PATIENT
  Age: 64 Year
  Sex: Male

DRUGS (10)
  1. ALTACE [Suspect]
     Dosage: UNK
     Route: 048
     Dates: start: 20080610, end: 20090218
  2. BI-PROFENID [Suspect]
     Dosage: UNK
     Route: 048
     Dates: start: 20090210, end: 20090218
  3. IRBESARTAN [Suspect]
     Dosage: UNK
     Route: 048
     Dates: start: 20080601, end: 20090218
  4. DI-ANTALVIC [Concomitant]
     Dosage: UNK
     Route: 048
     Dates: start: 20090210
  5. ISOPTIN [Concomitant]
  6. TAHOR [Concomitant]
     Route: 048
  7. GLUCOPHAGE [Concomitant]
     Route: 048
  8. ESIDRIX [Concomitant]
     Route: 048
  9. PANTOPRAZOLE SODIUM [Concomitant]
     Dosage: UNK
     Dates: start: 20090210
  10. PARACETAMOL [Concomitant]
     Dosage: UNK
     Dates: start: 20090210

REACTIONS (6)
  - BLOOD LACTIC ACID INCREASED [None]
  - METABOLIC ACIDOSIS [None]
  - NAUSEA [None]
  - RENAL FAILURE ACUTE [None]
  - RESPIRATORY DISTRESS [None]
  - VOMITING [None]
